FAERS Safety Report 9320976 (Version 1)
Quarter: 2013Q2

REPORT INFORMATION
  Report Type: Spontaneous
  Country: US (occurrence: US)
  Receive Date: 20130531
  Receipt Date: 20130531
  Transmission Date: 20140414
  Serious: No
  Sender: FDA-Public Use
  Company Number: US-PFIZER INC-2013163607

PATIENT
  Age: 63 Year
  Sex: Female

DRUGS (7)
  1. NORVASC [Suspect]
     Dosage: UNK
  2. CHLORTHALIDONE [Suspect]
     Dosage: UNK
  3. XANAX [Suspect]
     Dosage: UNK
  4. LOPRESSOR [Suspect]
     Dosage: UNK
  5. HYDRALAZINE [Suspect]
     Dosage: UNK
  6. DYAZIDE [Suspect]
     Dosage: UNK
  7. ASPIRIN [Suspect]
     Dosage: UNK

REACTIONS (1)
  - Drug hypersensitivity [Unknown]
